FAERS Safety Report 7041758-5 (Version None)
Quarter: 2010Q4

REPORT INFORMATION
  Report Type: 
  Country: None (occurrence: None)
  Receive Date: 20101013
  Receipt Date: 20100507
  Transmission Date: 20110411
  Serious: No
  Sender: FDA-Public Use
  Company Number: US-ASTRAZENECA-2010SE21010

PATIENT
  Age: 48 Year
  Sex: Female
  Weight: 59.9 kg

DRUGS (1)
  1. SYMBICORT [Suspect]
     Indication: CHRONIC OBSTRUCTIVE PULMONARY DISEASE
     Dosage: 4 PUFFS BID
     Route: 055
     Dates: start: 20080901

REACTIONS (2)
  - CONTUSION [None]
  - TREMOR [None]
